FAERS Safety Report 5645964-3 (Version None)
Quarter: 2008Q1

REPORT INFORMATION
  Report Type: 
  Country: None (occurrence: None)
  Receive Date: 20080229
  Receipt Date: 20080222
  Transmission Date: 20080703
  Serious: Yes (Disabling)
  Sender: FDA-Public Use
  Company Number: US-ABBOTT-08P-163-0439496-00

PATIENT
  Sex: Female
  Weight: 59.02 kg

DRUGS (1)
  1. HUMIRA [Suspect]
     Indication: CROHN'S DISEASE
     Route: 058
     Dates: start: 20070718, end: 20080213

REACTIONS (7)
  - ARTHRALGIA [None]
  - BACK PAIN [None]
  - FRACTURE [None]
  - HYPOKINESIA [None]
  - LUMBAR VERTEBRAL FRACTURE [None]
  - NERVE INJURY [None]
  - OSTEOPENIA [None]
